FAERS Safety Report 11023140 (Version 2)
Quarter: 2015Q2

REPORT INFORMATION
  Report Type: Report from Study
  Country: US (occurrence: US)
  Receive Date: 20150413
  Receipt Date: 20150505
  Transmission Date: 20150821
  Serious: Yes (Hospitalization)
  Sender: FDA-Public Use
  Company Number: US-ACTELION-A-US2015-113684

PATIENT
  Age: 67 Year
  Sex: Female

DRUGS (7)
  1. VENTAVIS [Suspect]
     Active Substance: ILOPROST
     Indication: PULMONARY ARTERIAL HYPERTENSION
     Dosage: 5 MCG, 6-9X DAILY
     Route: 055
     Dates: start: 20140818, end: 20150406
  2. VENTAVIS [Suspect]
     Active Substance: ILOPROST
     Dosage: 5 MCG, 6-9X/DAY
     Route: 055
  3. OXYGEN. [Concomitant]
     Active Substance: OXYGEN
  4. ADCIRCA [Concomitant]
     Active Substance: TADALAFIL
  5. WARFARIN [Concomitant]
     Active Substance: WARFARIN
  6. RIOCIGUAT [Concomitant]
     Active Substance: RIOCIGUAT
  7. MACITENTAN [Suspect]
     Active Substance: MACITENTAN
     Indication: PULMONARY ARTERIAL HYPERTENSION
     Dosage: 10 MG, QD
     Route: 048
     Dates: start: 20140408

REACTIONS (6)
  - Pneumonia [Unknown]
  - Dyspnoea [Not Recovered/Not Resolved]
  - Dyspnoea exertional [Unknown]
  - Constipation [Unknown]
  - Cough [Unknown]
  - No therapeutic response [Unknown]

NARRATIVE: CASE EVENT DATE: 20150401
